FAERS Safety Report 7637433-6 (Version None)
Quarter: 2011Q3

REPORT INFORMATION
  Report Type: 
  Country: None (occurrence: None)
  Receive Date: 20110726
  Receipt Date: 20110719
  Transmission Date: 20111222
  Serious: Yes (Other)
  Sender: FDA-Public Use
  Company Number: US-PFIZER INC-2011120676

PATIENT
  Sex: Male
  Weight: 112.5 kg

DRUGS (2)
  1. ACETAMINOPHEN AND HYDROCODONE BITARTRATE [Concomitant]
     Dosage: 5-325 MG
  2. SUTENT [Suspect]
     Indication: RENAL CELL CARCINOMA
     Dosage: 50 MG, 1X/DAY X28 DAYS THEN 2 WKS OFF
     Route: 048
     Dates: start: 20100503

REACTIONS (5)
  - PALMAR-PLANTAR ERYTHRODYSAESTHESIA SYNDROME [None]
  - ALOPECIA [None]
  - BLOOD PRESSURE INCREASED [None]
  - HAIR TEXTURE ABNORMAL [None]
  - GLOSSODYNIA [None]
